FAERS Safety Report 9070150 (Version 2)
Quarter: 2013Q1

REPORT INFORMATION
  Report Type: Spontaneous
  Country: US (occurrence: US)
  Receive Date: 20130129
  Receipt Date: 20130225
  Transmission Date: 20140127
  Serious: Yes (Death)
  Sender: FDA-Public Use
  Company Number: US-B.I. PHARMACEUTICALS,INC./RIDGEFIELD-2013-BI-01885BP

PATIENT
  Age: 75 Year
  Sex: Female
  Weight: 46.27 kg

DRUGS (7)
  1. SPIRIVA [Suspect]
     Indication: CHRONIC OBSTRUCTIVE PULMONARY DISEASE
     Dates: start: 2009
  2. AMLODIPINE [Concomitant]
  3. ADVAIR [Concomitant]
  4. CITALOPRAM [Concomitant]
  5. LISINOPRIL [Concomitant]
  6. RESTORIL [Concomitant]
  7. XANAX [Concomitant]

REACTIONS (1)
  - Death [Fatal]
